FAERS Safety Report 10362734 (Version 1)
Quarter: 2014Q1

REPORT INFORMATION
  Report Type: Spontaneous
  Country: US (occurrence: None)
  Receive Date: 20140306
  Receipt Date: 20140306
  Transmission Date: 20141002
  Serious: Yes (Hospitalization)
  Sender: FDA-Public Use
  Company Number: 163-21880-13060342

PATIENT
  Age: 73 Year
  Sex: Female
  Weight: 78 kg

DRUGS (19)
  1. REVLIMID [Suspect]
     Indication: 5Q MINUS SYNDROME
     Route: 048
     Dates: start: 20130412
  2. VITAMIN B12 (CYANOCOBALAMIN) (UNKNOWN) [Concomitant]
  3. MOTRIN (IBUPROFEN) (UNKNOWN) [Concomitant]
  4. CYMBALTA [Concomitant]
  5. JANUVIA (SITAGLIPTIN PHOSPHATE) (TABLETS) [Concomitant]
  6. LYRICA (PREGABALIN) (CAPSULES) [Concomitant]
  7. CARBIDOPA LEVODOPA (SINEMET) (TABLETS) [Concomitant]
  8. GEMFIBROZIL (TABLETS) [Concomitant]
  9. ALENDRONATE SODIUM (TABLETS) [Concomitant]
  10. SIMVASTATIN (TABLETS) [Concomitant]
  11. METFORMIN HCL (METFORMIN HYDROCHLORIDE) (TABLETS) [Concomitant]
  12. LISINOPRIL (TABLETS) (LISINOPRIL) [Concomitant]
  13. GLIPIZIDE (TABLETS) [Concomitant]
  14. VITAMIN D (ERGOCALCIFEROL (CHEWABLE TABLET) [Concomitant]
  15. ASPIRIN (ACETYLSALICYLIC ACID) (TABLETS) [Concomitant]
  16. VITAMIN C (ASCORBIC ACID) (TABLETS) [Concomitant]
  17. CALCIUM MAGNESIUM ZINC (CALCIUM MAGNESIUM ZINC) (TABLETS) [Concomitant]
  18. VESICARE (SOLIFENACIN SUCCINATE) (TABLETS) [Concomitant]
  19. ALPHA LIPOIC ACID (THIOCTIC ACID) (CAPSULES) [Concomitant]

REACTIONS (3)
  - Full blood count decreased [None]
  - Laboratory test abnormal [None]
  - Constipation [None]
